FAERS Safety Report 24547532 (Version 1)
Quarter: 2024Q4

REPORT INFORMATION
  Report Type: Spontaneous
  Country: IN (occurrence: IN)
  Receive Date: 20241025
  Receipt Date: 20241025
  Transmission Date: 20250115
  Serious: Yes (Other)
  Sender: ACCORD
  Company Number: IN-Accord-452817

PATIENT
  Age: 50 Year
  Sex: Male

DRUGS (11)
  1. ETOPOSIDE [Suspect]
     Active Substance: ETOPOSIDE
     Indication: Enteropathy-associated T-cell lymphoma
     Dosage: INITIATED AND COMPLETED 6 CYCLES
  2. METHOTREXATE [Suspect]
     Active Substance: METHOTREXATE
     Indication: Enteropathy-associated T-cell lymphoma
     Dosage: HIGH DOSE
  3. CYCLOPHOSPHAMIDE [Suspect]
     Active Substance: CYCLOPHOSPHAMIDE
     Indication: Enteropathy-associated T-cell lymphoma
     Dosage: INITIATED AND COMPLETED 6 CYCLES
  4. CYTARABINE [Suspect]
     Active Substance: CYTARABINE
     Indication: Enteropathy-associated T-cell lymphoma
     Dosage: HIGH DOSE
  5. DEXAMETHASONE [Suspect]
     Active Substance: DEXAMETHASONE
     Indication: Enteropathy-associated T-cell lymphoma
     Dosage: HIGH DOSE
  6. DOXORUBICIN [Suspect]
     Active Substance: DOXORUBICIN
     Indication: Enteropathy-associated T-cell lymphoma
     Dosage: INITIATED AND COMPLETED 6 CYCLES
  7. PREDNISOLONE [Suspect]
     Active Substance: PREDNISOLONE
     Indication: Enteropathy-associated T-cell lymphoma
     Dosage: INITIATED AND COMPLETED 6 CYCLES
  8. VINCRISTINE [Suspect]
     Active Substance: VINCRISTINE
     Indication: Enteropathy-associated T-cell lymphoma
     Dosage: INITIATED AND COMPLETED 6 CYCLES
  9. CYCLOPHOSPHAMIDE [Suspect]
     Active Substance: CYCLOPHOSPHAMIDE
     Indication: Enteropathy-associated T-cell lymphoma
     Dosage: HIGH DOSE
  10. VINCRISTINE [Suspect]
     Active Substance: VINCRISTINE
     Indication: Enteropathy-associated T-cell lymphoma
     Dosage: HIGH DOSE
  11. DOXORUBICIN [Suspect]
     Active Substance: DOXORUBICIN
     Indication: Enteropathy-associated T-cell lymphoma
     Dosage: HIGH DOSE

REACTIONS (2)
  - Febrile neutropenia [Unknown]
  - Septic shock [Unknown]
